FAERS Safety Report 4412220-0 (Version None)
Quarter: 2004Q2

REPORT INFORMATION
  Report Type: 
  Country: None (occurrence: None)
  Receive Date: 20040630
  Receipt Date: 20040324
  Transmission Date: 20050107
  Serious: No
  Sender: FDA-Public Use
  Company Number: 04P-163-0254640-00

PATIENT
  Age: 61 Year
  Sex: Female

DRUGS (7)
  1. HUMIRA [Suspect]
     Indication: RHEUMATOID ARTHRITIS
     Dosage: 40 MG, 1 IN 2 WK, SUBCUTANEOUS
     Route: 058
     Dates: start: 20040202
  2. ALENDRONATE SODIUM [Concomitant]
  3. LEVOTHYROXINE SODIUM [Concomitant]
  4. AMITRIPTYLINE HCL [Concomitant]
  5. CALCIUM [Concomitant]
  6. MULTI-VITAMINS [Concomitant]
  7. ERGOCALCIFEROL [Concomitant]

REACTIONS (1)
  - PAIN IN JAW [None]
